FAERS Safety Report 5941641-X (Version None)
Quarter: 2008Q4

REPORT INFORMATION
  Report Type: 
  Country: None (occurrence: None)
  Receive Date: 20081104
  Receipt Date: 20081104
  Transmission Date: 20090506
  Serious: Yes (Other)
  Sender: FDA-Public Use
  Company Number: None

PATIENT
  Sex: Male
  Weight: 81.6475 kg

DRUGS (1)
  1. STRATTERA [Suspect]
     Indication: ATTENTION DEFICIT/HYPERACTIVITY DISORDER
     Dosage: 40MG 1 PER DAY PO
     Route: 048
     Dates: start: 20060501, end: 20061231

REACTIONS (2)
  - NOCTURIA [None]
  - SPONTANEOUS PENILE ERECTION [None]
